FAERS Safety Report 6202257-3 (Version None)
Quarter: 2009Q2

REPORT INFORMATION
  Report Type: 
  Country: None (occurrence: None)
  Receive Date: 20090526
  Receipt Date: 20090515
  Transmission Date: 20091009
  Serious: Yes (Hospitalization, Other)
  Sender: FDA-Public Use
  Company Number: US-AVENTIS-200914271US

PATIENT
  Age: 57 Year
  Sex: Male

DRUGS (4)
  1. LANTUS [Suspect]
     Indication: BLOOD GLUCOSE ABNORMAL
     Route: 058
     Dates: start: 20060101, end: 20090501
  2. LANTUS [Suspect]
     Route: 058
     Dates: start: 20060101, end: 20090501
  3. LANTUS [Suspect]
     Route: 058
     Dates: start: 20090515
  4. LANTUS [Suspect]
     Route: 058
     Dates: start: 20090515

REACTIONS (4)
  - BLOOD GLUCOSE INCREASED [None]
  - MUSCULAR WEAKNESS [None]
  - TREATMENT NONCOMPLIANCE [None]
  - WEIGHT DECREASED [None]
